FAERS Safety Report 12287016 (Version 5)
Quarter: 2016Q2

REPORT INFORMATION
  Report Type: Spontaneous
  Country: CA (occurrence: CA)
  Receive Date: 20160420
  Receipt Date: 20160516
  Transmission Date: 20160815
  Serious: Yes (Other)
  Sender: FDA-Public Use
  Company Number: CA-PFIZER INC-2016215635

PATIENT
  Age: 76 Year
  Sex: Female

DRUGS (9)
  1. GOLD [Suspect]
     Active Substance: GOLD
     Dosage: UNK
  2. LYRICA [Suspect]
     Active Substance: PREGABALIN
     Indication: RHEUMATOID ARTHRITIS
     Dosage: UNK
     Route: 048
  3. ENBREL [Suspect]
     Active Substance: ETANERCEPT
     Indication: RHEUMATOID ARTHRITIS
     Dosage: 50 MG, WEEKLY
     Route: 058
     Dates: end: 20160414
  4. METHOTREXATE SODIUM. [Suspect]
     Active Substance: METHOTREXATE SODIUM
     Indication: RHEUMATOID ARTHRITIS
     Dosage: 25 MG, WEEKLY
     Route: 058
  5. XELJANZ [Concomitant]
     Active Substance: TOFACITINIB CITRATE
     Indication: RHEUMATOID ARTHRITIS
     Dosage: UNK, 2X/DAY
     Route: 048
  6. SULFASALAZINE. [Suspect]
     Active Substance: SULFASALAZINE
     Indication: RHEUMATOID ARTHRITIS
     Dosage: 1 G, 2X/DAY
     Route: 048
  7. PREDNISONE. [Suspect]
     Active Substance: PREDNISONE
     Dosage: UNK
  8. HUMIRA [Suspect]
     Active Substance: ADALIMUMAB
     Indication: RHEUMATOID ARTHRITIS
     Dosage: 40 MG, EVERY 2 WEEKS
  9. PLAQUENIL [Suspect]
     Active Substance: HYDROXYCHLOROQUINE SULFATE
     Dosage: UNK

REACTIONS (14)
  - Hypertrophic cardiomyopathy [Unknown]
  - Mobility decreased [Unknown]
  - Hypoacusis [Not Recovered/Not Resolved]
  - Temperature intolerance [Unknown]
  - Sleep disorder due to general medical condition, insomnia type [Not Recovered/Not Resolved]
  - Drug ineffective [Unknown]
  - Hypertension [Unknown]
  - Fibromyalgia [Unknown]
  - Pain in extremity [Unknown]
  - Dependence [Not Recovered/Not Resolved]
  - Gait disturbance [Unknown]
  - Treatment failure [Unknown]
  - Joint swelling [Unknown]
  - Pain [Unknown]

NARRATIVE: CASE EVENT DATE: 20160411
